FAERS Safety Report 5601155-3 (Version None)
Quarter: 2008Q1

REPORT INFORMATION
  Report Type: 
  Country: None (occurrence: None)
  Receive Date: 20080122
  Receipt Date: 20080122
  Transmission Date: 20080703
  Serious: Yes (Other)
  Sender: FDA-Public Use
  Company Number: None

PATIENT
  Sex: Male
  Weight: 97.5234 kg

DRUGS (1)
  1. CHANTIX [Suspect]
     Indication: SMOKING CESSATION THERAPY
     Dosage: 4 WEEK PACK EVERYDAY PO
     Route: 048
     Dates: start: 20071007, end: 20071111

REACTIONS (8)
  - ANXIETY [None]
  - DISTURBANCE IN ATTENTION [None]
  - FATIGUE [None]
  - FEELING JITTERY [None]
  - HOSTILITY [None]
  - LOSS OF EMPLOYMENT [None]
  - SENSATION OF FOREIGN BODY [None]
  - SOMNOLENCE [None]
